FAERS Safety Report 8876831 (Version 2)
Quarter: 2012Q4

REPORT INFORMATION
  Report Type: 
  Country: NL (occurrence: NL)
  Receive Date: 20121029
  Receipt Date: 20121108
  Transmission Date: 20130627
  Serious: Yes (Hospitalization, Other)
  Sender: FDA-Public Use
  Company Number: NL-B.I. PHARMACEUTICALS,INC./RIDGEFIELD-2012-NL-00442NL

PATIENT
  Sex: Female

DRUGS (3)
  1. TRAJENTA [Suspect]
     Indication: DIABETES MELLITUS
     Dates: start: 20120726, end: 20121008
  2. INSULIN [Concomitant]
     Indication: DIABETES MELLITUS
     Dosage: 160 U
  3. OTHER MEDICATIONS [Concomitant]
     Route: 048

REACTIONS (7)
  - Neoplasm [Unknown]
  - Investigation [Not Recovered/Not Resolved]
  - Hypoglycaemia [Not Recovered/Not Resolved]
  - Blood glucose decreased [Not Recovered/Not Resolved]
  - Glycosylated haemoglobin decreased [Unknown]
  - Blood glucose increased [Unknown]
  - Glycosylated haemoglobin decreased [Unknown]
